FAERS Safety Report 9681648 (Version 1)
Quarter: 2013Q4

REPORT INFORMATION
  Report Type: Spontaneous
  Country: US (occurrence: US)
  Receive Date: 20131111
  Receipt Date: 20131111
  Transmission Date: 20140711
  Serious: Yes (Hospitalization)
  Sender: FDA-Public Use
  Company Number: US-FRI-1000050818

PATIENT
  Age: 53 Year
  Sex: Male

DRUGS (4)
  1. ESCITALOPRAM [Suspect]
     Indication: DEPRESSION
     Dosage: 10 MG
     Route: 048
     Dates: start: 201306, end: 20131022
  2. RISPERIDONE [Concomitant]
     Dosage: 6 MG
  3. BENZTROPINE [Concomitant]
     Dosage: 4 MG
  4. VALIUM [Concomitant]
     Dosage: 5 MG

REACTIONS (3)
  - Cholelithiasis [Recovered/Resolved]
  - Hallucination, auditory [Not Recovered/Not Resolved]
  - Hallucination, visual [Recovered/Resolved]
